FAERS Safety Report 7065580-9 (Version None)
Quarter: 2010Q4

REPORT INFORMATION
  Report Type: 
  Country: None (occurrence: None)
  Receive Date: 20101027
  Receipt Date: 20101019
  Transmission Date: 20110411
  Serious: Yes (Death, Life-Threatening, Hospitalization)
  Sender: FDA-Public Use
  Company Number: AU-ROCHE-733305

PATIENT
  Sex: Male
  Weight: 88.1 kg

DRUGS (37)
  1. PLACEBO (BEVACIZUMAB) [Suspect]
     Indication: DIFFUSE LARGE B-CELL LYMPHOMA
     Dosage: LAST DOSE PRIOR TO SAE: 03 MARCH 2010.
     Route: 042
     Dates: start: 20091201
  2. RITUXIMAB [Suspect]
     Indication: DIFFUSE LARGE B-CELL LYMPHOMA
     Dosage: LAST DOSE PRIOR TO SAE 03 MARCH 2010
     Route: 042
     Dates: start: 20091202
  3. DOXORUBICIN HCL [Suspect]
     Indication: DIFFUSE LARGE B-CELL LYMPHOMA
     Dosage: LAST DOSE PRIOR TO SAE: 23 DEC 2009
     Route: 042
     Dates: start: 20091202, end: 20100113
  4. DOXORUBICIN HCL [Suspect]
     Route: 042
     Dates: start: 20100113
  5. DOXORUBICIN HCL [Suspect]
     Dosage: LAST DOSE PRIOR TO SAE WAS 03 MARCH 2010
     Route: 042
  6. VINCRISTINE [Suspect]
     Indication: DIFFUSE LARGE B-CELL LYMPHOMA
     Dosage: LAST DOSE PRIOR TO SAE: 03 MARCH 2010
     Route: 042
     Dates: start: 20091202
  7. CYCLOPHOSPHAMIDE [Suspect]
     Indication: DIFFUSE LARGE B-CELL LYMPHOMA
     Dosage: LAST DOSE PRIOR TO SAE: 23 DEC 2009
     Route: 042
     Dates: start: 20091202, end: 20100113
  8. CYCLOPHOSPHAMIDE [Suspect]
     Route: 042
     Dates: start: 20100113
  9. CYCLOPHOSPHAMIDE [Suspect]
     Dosage: LAST DOSE PRIOR TO SAE WAS 03 MARCH 2010
     Route: 042
  10. PREDNISOLONE [Suspect]
     Indication: DIFFUSE LARGE B-CELL LYMPHOMA
     Dosage: FREQUENCY:1, 2, 3, 4, 5 EVERY 21 DAYS.  LAST DOSE PRIOR TO SAE: 07 MARCH 2010
     Route: 048
     Dates: start: 20091202
  11. METHOTREXATE SODIUM [Suspect]
     Indication: PRODUCT USED FOR UNKNOWN INDICATION
     Route: 065
  12. ISOSORBIDE MONONITRATE [Concomitant]
  13. MICARDIS HCT [Concomitant]
     Dosage: TDD: 80/12.5 MG
     Dates: end: 20100909
  14. ASPIRIN [Concomitant]
  15. ESOMEPRAZOLE [Concomitant]
  16. AMLODIPINE [Concomitant]
     Dosage: DRUG NAME REPORTED AS: AMILODIPINE.
     Dates: end: 20100902
  17. AMLODIPINE [Concomitant]
     Dates: start: 20100904, end: 20100904
  18. METHYLDOPA [Concomitant]
  19. METHYLDOPA [Concomitant]
     Dates: end: 20100902
  20. METOPROLOL [Concomitant]
     Dates: start: 20100902, end: 20100902
  21. METOPROLOL [Concomitant]
     Dates: start: 20100921, end: 20100923
  22. METOPROLOL [Concomitant]
     Dates: start: 20100923
  23. INSULIN NOVO RAPITARD [Concomitant]
     Dosage: TDD: 16 UNITS.  DRUG NAME REPORTED AS: INSULIN NOVO RAPID.
  24. ISOPHANE INSULIN [Concomitant]
     Dosage: TDD: 34 UNITS.
  25. XALATAN [Concomitant]
     Dosage: 1 DROP BOTH EYES.
     Route: 050
     Dates: end: 20100902
  26. SERETIDE [Concomitant]
     Dosage: SERETIDE INHALER: 250/25 MG.
     Dates: end: 20100902
  27. VYTORIN [Concomitant]
     Dosage: 10/40 MG
     Dates: end: 20100902
  28. ALLOPURINOL [Concomitant]
     Dates: start: 20091130
  29. NOVORAPID [Concomitant]
     Dosage: TTD: 48 UNITS
     Dates: start: 20020101, end: 20100901
  30. LANTUS [Concomitant]
     Dosage: TTD: 26 UNITS
     Dates: start: 20100902
  31. CLEXANE [Concomitant]
     Dates: start: 20100902
  32. CLEXANE [Concomitant]
     Dates: start: 20100921, end: 20100923
  33. OMEPRAZOLE [Concomitant]
     Dates: start: 19960101
  34. COLOXYL WITH SENNA [Concomitant]
     Dates: start: 20100902
  35. TELMISARTAN [Concomitant]
     Dosage: TDD: 80/12.5 MG
  36. CITALOPRAM HYDROBROMIDE [Concomitant]
     Dates: start: 20100924
  37. BETAXOLOL [Concomitant]
     Dosage: DRUG: BETAXOLOL 0.5%
     Dates: start: 20100921

REACTIONS (3)
  - DEATH [None]
  - MYOCARDIAL INFARCTION [None]
  - PNEUMONIA [None]
